FAERS Safety Report 13491804 (Version 6)
Quarter: 2018Q1

REPORT INFORMATION
  Report Type: Spontaneous
  Country: US (occurrence: US)
  Receive Date: 20170427
  Receipt Date: 20180108
  Transmission Date: 20180508
  Serious: Yes (Congenital Anomaly, Other)
  Sender: FDA-Public Use
  Company Number: PHEH2017US011871

PATIENT
  Sex: Female

DRUGS (1)
  1. ZOFRAN [Suspect]
     Active Substance: ONDANSETRON HYDROCHLORIDE
     Indication: FOETAL EXPOSURE DURING PREGNANCY
     Dosage: MOTHER^S DOSE: 1 DF, Q6H, PRN
     Route: 064

REACTIONS (19)
  - Pharyngitis [Unknown]
  - Croup infectious [Unknown]
  - Otitis media acute [Unknown]
  - Jaundice neonatal [Unknown]
  - Candida nappy rash [Unknown]
  - Gastroenteritis viral [Unknown]
  - Language disorder [Unknown]
  - Cleft lip [Unknown]
  - Injury [Unknown]
  - Upper respiratory tract infection [Unknown]
  - Cleft palate [Unknown]
  - Viral rash [Unknown]
  - Cerumen impaction [Unknown]
  - Viral infection [Unknown]
  - Nose deformity [Unknown]
  - Exanthema subitum [Unknown]
  - Dacryostenosis congenital [Unknown]
  - Foetal exposure during pregnancy [Unknown]
  - Diarrhoea [Unknown]
